FAERS Safety Report 19963636 (Version 2)
Quarter: 2022Q1

REPORT INFORMATION
  Report Type: Spontaneous
  Country: CA (occurrence: CA)
  Receive Date: 20211018
  Receipt Date: 20220113
  Transmission Date: 20220423
  Serious: Yes (Other)
  Sender: FDA-Public Use
  Company Number: CA-SAMSUNG BIOEPIS-SB-2021-24212

PATIENT
  Age: 22 Year
  Sex: Male
  Weight: 49 kg

DRUGS (2)
  1. INFLIXIMAB [Suspect]
     Active Substance: INFLIXIMAB
     Indication: Crohn^s disease
     Route: 042
  2. PREDNISONE [Concomitant]
     Active Substance: PREDNISONE
     Indication: Product used for unknown indication
     Route: 065

REACTIONS (9)
  - Gastrointestinal disorder [Unknown]
  - Postoperative wound infection [Unknown]
  - Post procedural discharge [Unknown]
  - Arthralgia [Unknown]
  - Enterocutaneous fistula [Unknown]
  - Fistula discharge [Unknown]
  - Haemorrhage [Unknown]
  - Infection [Unknown]
  - Off label use [Unknown]
